FAERS Safety Report 24361677 (Version 2)
Quarter: 2024Q4

REPORT INFORMATION
  Report Type: Spontaneous
  Country: GB (occurrence: None)
  Receive Date: 20240925
  Receipt Date: 20241009
  Transmission Date: 20250114
  Serious: Yes (Other)
  Sender: ORION
  Company Number: GB-002147023-NVSC2024GB180634

PATIENT
  Age: 69 Year

DRUGS (4)
  1. METHOTREXATE [Suspect]
     Active Substance: METHOTREXATE
     Indication: Product used for unknown indication
     Dates: start: 2017
  2. COSENTYX [Suspect]
     Active Substance: SECUKINUMAB
     Indication: Product used for unknown indication
  3. SULFASALAZINE [Suspect]
     Active Substance: SULFASALAZINE
     Indication: Product used for unknown indication
     Dates: start: 2017, end: 2021
  4. ETANERCEPT [Concomitant]
     Active Substance: ETANERCEPT
     Dosage: MEDICATION WAS STOPPED TEMPORARILY (MAR TO JUN-2019) AND RESTARTED IN JUN-2019. REVIEW IN MAY-2020 R
     Dates: start: 201902

REACTIONS (4)
  - Breast cancer [Unknown]
  - Urinary incontinence [Unknown]
  - Psoriasis area severity index increased [Unknown]
  - Mammogram abnormal [Unknown]

NARRATIVE: CASE EVENT DATE: 20210101
